FAERS Safety Report 5662003-9 (Version None)
Quarter: 2008Q1

REPORT INFORMATION
  Report Type: 
  Country: None (occurrence: None)
  Receive Date: 20080312
  Receipt Date: 20080229
  Transmission Date: 20080703
  Serious: Yes (Other)
  Sender: FDA-Public Use
  Company Number: US-ELI_LILLY_AND_COMPANY-US200802004440

PATIENT
  Sex: Male

DRUGS (8)
  1. SOMATROPIN [Suspect]
     Indication: GROWTH HORMONE DEFICIENCY
     Dosage: 0.4 MG, DAILY (1/D)
     Route: 058
     Dates: start: 19980926
  2. GLUCOPHAGE [Concomitant]
     Indication: DIABETES MELLITUS
     Dates: start: 20000101
  3. CORTISONE ACETATE [Concomitant]
     Indication: ADRENAL INSUFFICIENCY
     Dates: start: 19840101
  4. TESTODERM [Concomitant]
     Indication: HYPOGONADISM
     Dates: start: 19960501, end: 20040101
  5. SYNTHROID [Concomitant]
     Indication: HYPOTHYROIDISM
     Dates: start: 19840101
  6. INDERAL [Concomitant]
     Indication: HYPERTENSION
     Dates: start: 19830101
  7. ASPIRIN [Concomitant]
     Indication: DIABETES MELLITUS
     Dates: start: 19990101
  8. LIPITOR [Concomitant]
     Indication: HYPERLIPIDAEMIA
     Dates: start: 19980101, end: 20050601

REACTIONS (1)
  - MALIGNANT MELANOMA [None]
